FAERS Safety Report 6645728-8 (Version None)
Quarter: 2010Q1

REPORT INFORMATION
  Report Type: 
  Country: None (occurrence: None)
  Receive Date: 20100318
  Receipt Date: 20100318
  Transmission Date: 20100710
  Serious: Yes (Hospitalization)
  Sender: FDA-Public Use
  Company Number: None

PATIENT
  Sex: Female
  Weight: 72 kg

DRUGS (6)
  1. CYCLOPHOSPHAMIDE [Suspect]
     Dosage: 1880 MG
  2. CYTARABINE [Suspect]
     Dosage: 1128 MG
  3. MERCAPTOPURINE [Suspect]
     Dosage: 1568 MG
  4. METHOTREXATE [Suspect]
     Dosage: 45 MG
  5. PEG-L ASPARAGINASE (K-H) [Suspect]
     Dosage: 4700 IU
  6. VINCRISTINE SULFATE [Suspect]
     Dosage: 2 MG

REACTIONS (4)
  - ASTHENIA [None]
  - COUGH [None]
  - NAUSEA [None]
  - PYREXIA [None]
